FAERS Safety Report 6374589-X (Version None)
Quarter: 2009Q3

REPORT INFORMATION
  Report Type: 
  Country: None (occurrence: None)
  Receive Date: 20090924
  Receipt Date: 20090717
  Transmission Date: 20100115
  Serious: No
  Sender: FDA-Public Use
  Company Number: US-ASTRAZENECA-2009UW20341

PATIENT
  Age: 13508 Day
  Sex: Female
  Weight: 94.3 kg

DRUGS (3)
  1. SEROQUEL [Suspect]
     Indication: ANXIETY
     Route: 048
     Dates: start: 20090715
  2. SEROQUEL [Suspect]
     Indication: DEPRESSION
     Route: 048
     Dates: start: 20090715
  3. KLONOPIN [Concomitant]

REACTIONS (2)
  - CRYING [None]
  - INSOMNIA [None]
